FAERS Safety Report 6578809-8 (Version None)
Quarter: 2010Q1

REPORT INFORMATION
  Report Type: 
  Country: None (occurrence: None)
  Receive Date: 20100202
  Receipt Date: 20100118
  Transmission Date: 20100710
  Serious: Yes (Hospitalization, Other)
  Sender: FDA-Public Use
  Company Number: 2010000246

PATIENT
  Age: 62 Year
  Sex: Male

DRUGS (16)
  1. ERLOTINIB HYDROCHLORIDE [Suspect]
     Indication: LUNG ADENOCARCINOMA
     Dosage: (150 MG, QD), ORAL; (125 MG, QD), ORAL; (100 MG, QD), ORAL
     Route: 048
     Dates: start: 20081223, end: 20090309
  2. ERLOTINIB HYDROCHLORIDE [Suspect]
     Indication: LUNG ADENOCARCINOMA
     Dosage: (150 MG, QD), ORAL; (125 MG, QD), ORAL; (100 MG, QD), ORAL
     Route: 048
     Dates: start: 20090602, end: 20091109
  3. ERLOTINIB HYDROCHLORIDE [Suspect]
     Indication: LUNG ADENOCARCINOMA
     Dosage: (150 MG, QD), ORAL; (125 MG, QD), ORAL; (100 MG, QD), ORAL
     Route: 048
     Dates: start: 20080930
  4. MAGNEVIST [Suspect]
     Dosage: INTRAVENOUS
     Route: 042
  5. ALDACTONE [Suspect]
     Indication: HYPERTENSION
     Dosage: (25 MG, QD), ORAL
     Route: 048
  6. LASIX [Suspect]
     Indication: HYPERTENSION
     Dosage: (40 MG, QD), ORAL
     Route: 048
  7. LOXONIN (LOXOPROFEN SODIUM) [Suspect]
     Dosage: (180 MG, QD), ORAL
     Route: 048
  8. ZOMETA [Suspect]
     Dosage: (4 MG), INTRAVENOUS
     Route: 042
  9. DECADRON [Suspect]
     Dosage: ORAL
     Route: 048
  10. CYTOTEC [Concomitant]
  11. MAGMITT [Concomitant]
  12. MUCOSTA (REBAMIPIDE) [Concomitant]
  13. LUPRAC [Concomitant]
  14. OXYCONTIN [Concomitant]
  15. NOVOLIN R [Concomitant]
  16. MUCOSOLVAN (AMBROXOL HYDROCHLORIDE) [Concomitant]

REACTIONS (2)
  - ANAPHYLACTIC REACTION [None]
  - LEUKOENCEPHALOPATHY [None]
